FAERS Safety Report 9626843 (Version 2)
Quarter: 2013Q4

REPORT INFORMATION
  Report Type: Spontaneous
  Country: US (occurrence: US)
  Receive Date: 20131016
  Receipt Date: 20131029
  Transmission Date: 20140711
  Serious: Yes (Hospitalization)
  Sender: FDA-Public Use
  Company Number: US-PFIZER INC-2013294147

PATIENT
  Age: 16 Year
  Sex: Male

DRUGS (12)
  1. PIPERACILLIN/TAZOBACTAM [Suspect]
     Indication: NEUTROPENIA
     Dosage: UNK
  2. PIPERACILLIN/TAZOBACTAM [Suspect]
     Indication: PYREXIA
  3. VANCOMYCIN [Concomitant]
     Indication: NEUTROPENIA
     Dosage: UNK
  4. VANCOMYCIN [Concomitant]
     Indication: PYREXIA
  5. VORICONAZOLE [Concomitant]
     Indication: NEUTROPENIA
  6. VORICONAZOLE [Concomitant]
     Indication: PYREXIA
  7. ETOPOSIDE [Concomitant]
     Indication: CHEMOTHERAPY
     Dosage: UNK
  8. ETOPOSIDE [Concomitant]
     Indication: ACUTE MYELOID LEUKAEMIA
  9. DAUNORUBICIN [Concomitant]
     Indication: CHEMOTHERAPY
  10. DAUNORUBICIN [Concomitant]
     Indication: ACUTE MYELOID LEUKAEMIA
  11. CYTARABINE [Concomitant]
     Indication: CHEMOTHERAPY
     Dosage: UNK
  12. CYTARABINE [Concomitant]
     Indication: ACUTE MYELOID LEUKAEMIA

REACTIONS (10)
  - Renal failure acute [Recovered/Resolved]
  - Blood creatinine increased [Recovered/Resolved]
  - Petechiae [Unknown]
  - Staphylococcal infection [Unknown]
  - Pyrexia [Unknown]
  - Rash [Unknown]
  - Vomiting [Unknown]
  - Hypotension [Unknown]
  - Kidney enlargement [Unknown]
  - Tubulointerstitial nephritis [Unknown]
